FAERS Safety Report 6631849-2 (Version None)
Quarter: 2010Q1

REPORT INFORMATION
  Report Type: 
  Country: None (occurrence: None)
  Receive Date: 20100310
  Receipt Date: 20100301
  Transmission Date: 20100710
  Serious: Yes (Other)
  Sender: FDA-Public Use
  Company Number: DE-GDP-10407542

PATIENT
  Sex: Female

DRUGS (1)
  1. METROLOTION [Suspect]
     Indication: ROSACEA
     Dosage: (1 DF BID TOPICAL)
     Route: 061
     Dates: start: 20091001, end: 20100115

REACTIONS (12)
  - ALCOHOL INTERACTION [None]
  - ALCOHOL INTOLERANCE [None]
  - ALCOHOL USE [None]
  - ANXIETY [None]
  - DISCOMFORT [None]
  - DIZZINESS [None]
  - FEAR [None]
  - FEELING HOT [None]
  - MUSCLE SPASMS [None]
  - MUSCLE TWITCHING [None]
  - PALPITATIONS [None]
  - PANIC ATTACK [None]
